FAERS Safety Report 5504013-8 (Version None)
Quarter: 2007Q4

REPORT INFORMATION
  Report Type: 
  Country: None (occurrence: None)
  Receive Date: 20071101
  Receipt Date: 20071019
  Transmission Date: 20080405
  Serious: Yes (Hospitalization)
  Sender: FDA-Public Use
  Company Number: US-ELI_LILLY_AND_COMPANY-US200710004926

PATIENT
  Sex: Female

DRUGS (6)
  1. EVISTA [Suspect]
     Dosage: 60 MG, UNK
     Route: 048
  2. CYMBALTA [Suspect]
     Dosage: 30 MG, UNK
  3. BENAZEPRIL HYDROCHLORIDE [Concomitant]
  4. OXYCONTIN [Concomitant]
     Dosage: 20 MG, UNK
  5. PERCOCET [Concomitant]
  6. AMBIEN [Concomitant]

REACTIONS (4)
  - ARTHRALGIA [None]
  - SPINAL FUSION SURGERY [None]
  - SPINAL NERVE STIMULATOR IMPLANTATION [None]
  - SPINAL OPERATION [None]
